FAERS Safety Report 9018079 (Version 1)
Quarter: 2013Q1

REPORT INFORMATION
  Report Type: Spontaneous
  Country: US (occurrence: None)
  Receive Date: 20130110
  Receipt Date: 20130110
  Transmission Date: 20140127
  Serious: Yes (Other)
  Sender: FDA-Public Use
  Company Number: None

PATIENT
  Age: 33 Year
  Sex: Female
  Weight: 46.72 kg

DRUGS (1)
  1. BENZO/LIDO/TETRA 20/8/4% WEST KNOLL PHARMACY [Suspect]
     Indication: DEPILATION
     Dosage: COAT SKIN BEFORE ELECTROLYZE
     Dates: start: 20121205, end: 20121220

REACTIONS (5)
  - Palpitations [None]
  - Dyspnoea [None]
  - Sensation of heaviness [None]
  - Anxiety [None]
  - Depression [None]
